FAERS Safety Report 5580522-0 (Version None)
Quarter: 2007Q4

REPORT INFORMATION
  Report Type: 
  Country: None (occurrence: None)
  Receive Date: 20071231
  Receipt Date: 20071231
  Transmission Date: 20080405
  Serious: Yes (Hospitalization)
  Sender: FDA-Public Use
  Company Number: None

PATIENT
  Sex: Female
  Weight: 65 kg

DRUGS (4)
  1. DOXORUBICIN HYDROCHLORIDE [Suspect]
     Dosage: 100 MG
  2. TAXOL [Suspect]
     Dosage: 285 MG
  3. NEULASTA [Suspect]
     Dosage: 6 MG
  4. CYCLOPHOSPHAMIDE [Suspect]
     Dosage: 1002 MG

REACTIONS (11)
  - ABDOMINAL DISCOMFORT [None]
  - ARRHYTHMIA [None]
  - BLOOD SODIUM DECREASED [None]
  - CARDIAC FAILURE CONGESTIVE [None]
  - CHRONIC OBSTRUCTIVE PULMONARY DISEASE [None]
  - DIARRHOEA [None]
  - LEFT VENTRICULAR DYSFUNCTION [None]
  - LIVER FUNCTION TEST ABNORMAL [None]
  - PNEUMONIA [None]
  - RIGHT ATRIAL DILATATION [None]
  - WEIGHT INCREASED [None]
